FAERS Safety Report 20375602 (Version 1)
Quarter: 2022Q1

REPORT INFORMATION
  Report Type: Spontaneous
  Country: CA (occurrence: CA)
  Receive Date: 20220125
  Receipt Date: 20220125
  Transmission Date: 20220423
  Serious: Yes (Hospitalization, Other)
  Sender: FDA-Public Use
  Company Number: CA-TEVA-2022-CA-2000675

PATIENT
  Age: 63 Year
  Sex: Male

DRUGS (8)
  1. ETOPOSIDE [Suspect]
     Active Substance: ETOPOSIDE
     Indication: Lung neoplasm malignant
     Route: 042
  2. CISPLATIN [Concomitant]
     Active Substance: CISPLATIN
     Route: 042
  3. DEXAMETHASONE [Concomitant]
     Active Substance: DEXAMETHASONE
     Route: 065
  4. FOSAPREPITANT [Concomitant]
     Active Substance: FOSAPREPITANT
     Dosage: SINGLE DOSE VIAL
  5. FUROSEMIDE [Concomitant]
     Active Substance: FUROSEMIDE
     Route: 065
  6. MAGNESIUM SULFATE [Concomitant]
     Active Substance: MAGNESIUM SULFATE
  7. MANNITOL [Concomitant]
     Active Substance: MANNITOL
  8. ONDANSETRON [Concomitant]
     Active Substance: ONDANSETRON

REACTIONS (6)
  - Chest discomfort [Unknown]
  - Dizziness [Unknown]
  - Dysgeusia [Unknown]
  - Dyspnoea [Unknown]
  - Erythema [Unknown]
  - Troponin increased [Unknown]
